FAERS Safety Report 19521067 (Version 2)
Quarter: 2021Q3

REPORT INFORMATION
  Report Type: Report from Study
  Country: FR (occurrence: FR)
  Receive Date: 20210712
  Receipt Date: 20210713
  Transmission Date: 20211014
  Serious: Yes (Hospitalization)
  Sender: FDA-Public Use
  Company Number: FR-EXELIXIS-XL18421042147

PATIENT
  Age: 62 Year
  Sex: Male
  Weight: 92 kg

DRUGS (12)
  1. TIXTAR [Concomitant]
     Active Substance: RIFAXIMIN
  2. PREGABALIN. [Concomitant]
     Active Substance: PREGABALIN
  3. PANTOPRAZOLE [Concomitant]
     Active Substance: PANTOPRAZOLE
  4. ATEZOLIZUMAB. [Suspect]
     Active Substance: ATEZOLIZUMAB
     Indication: HEPATOCELLULAR CARCINOMA
     Dosage: 1200 MG, Q3WEEKS
     Route: 042
     Dates: start: 20190813
  5. LASILIX [Concomitant]
     Active Substance: FUROSEMIDE
  6. XL184 [Suspect]
     Active Substance: CABOZANTINIB
     Indication: HEPATOCELLULAR CARCINOMA
     Dosage: 40 MG, QD
     Route: 048
     Dates: start: 20190813
  7. ACEBUTOLOL [Concomitant]
     Active Substance: ACEBUTOLOL
  8. XULTOPHY 100/3.6 [Concomitant]
     Active Substance: INSULIN DEGLUDEC\LIRAGLUTIDE
  9. QUESTRAN [Concomitant]
     Active Substance: CHOLESTYRAMINE
  10. LEVOTHYROXINE. [Concomitant]
     Active Substance: LEVOTHYROXINE
  11. ALDACTONE [Concomitant]
     Active Substance: SPIRONOLACTONE
  12. PARACETAMOL [Concomitant]
     Active Substance: ACETAMINOPHEN

REACTIONS (1)
  - Inflammation [Recovered/Resolved]

NARRATIVE: CASE EVENT DATE: 20210703
